FAERS Safety Report 7540134 (Version 6)
Quarter: 2013Q2

REPORT INFORMATION
  Report Type: Report from Study
  Country: JP (occurrence: JP)
  Receive Date: 20100813
  Receipt Date: 20130416
  Transmission Date: 20140414
  Serious: Yes (Life-Threatening, Hospitalization, Other)
  Sender: FDA-Public Use
  Company Number: JP-ROCHE-720055

PATIENT
  Age: 79 Year
  Sex: Female
  Weight: 40 kg

DRUGS (15)
  1. TOCILIZUMAB [Suspect]
     Indication: RHEUMATOID ARTHRITIS
     Route: 041
     Dates: start: 20090918, end: 20090918
  2. TOCILIZUMAB [Suspect]
     Route: 041
     Dates: start: 20091016, end: 20091016
  3. TOCILIZUMAB [Suspect]
     Route: 041
     Dates: start: 20091113, end: 20091113
  4. TOCILIZUMAB [Suspect]
     Route: 041
     Dates: start: 20091211, end: 20091211
  5. TOCILIZUMAB [Suspect]
     Route: 041
     Dates: start: 20100115, end: 20100115
  6. TOCILIZUMAB [Suspect]
     Route: 041
     Dates: start: 20100409, end: 20100728
  7. METHOTREXATE [Suspect]
     Indication: RHEUMATOID ARTHRITIS
     Route: 048
  8. METHOTREXATE [Suspect]
     Route: 048
     Dates: start: 20090908, end: 20100728
  9. PREDNISOLONE [Suspect]
     Indication: RHEUMATOID ARTHRITIS
     Route: 048
  10. FOLIAMIN [Concomitant]
     Indication: PROPHYLAXIS
     Route: 048
  11. CELCOX [Concomitant]
     Indication: RHEUMATOID ARTHRITIS
     Route: 048
  12. OMEPRAL [Concomitant]
     Indication: PROPHYLAXIS
     Route: 048
  13. BONALON [Concomitant]
     Indication: OSTEOPOROSIS
     Route: 048
  14. ONEALFA [Concomitant]
     Indication: OSTEOPOROSIS
     Route: 048
  15. MAINTATE [Concomitant]
     Indication: BUNDLE BRANCH BLOCK RIGHT
     Route: 048

REACTIONS (7)
  - Pneumocystis jirovecii pneumonia [Recovering/Resolving]
  - Pneumonia cryptococcal [Not Recovered/Not Resolved]
  - Pancytopenia [Unknown]
  - Renal failure [Unknown]
  - Gastrointestinal haemorrhage [Unknown]
  - Nausea [Unknown]
  - Drug ineffective [Unknown]
